FAERS Safety Report 19877047 (Version 4)
Quarter: 2022Q2

REPORT INFORMATION
  Report Type: Spontaneous
  Country: IT (occurrence: IT)
  Receive Date: 20210924
  Receipt Date: 20220527
  Transmission Date: 20220720
  Serious: Yes (Hospitalization, Other)
  Sender: FDA-Public Use
  Company Number: IT-AUROBINDO-AUR-APL-2021-034347

PATIENT
  Age: 77 Year
  Sex: Male

DRUGS (8)
  1. OLMESARTAN [Suspect]
     Active Substance: OLMESARTAN
     Indication: Hypertension
     Dosage: 40 MILLIGRAM, ONCE A DAY
     Route: 065
  2. HYDROCHLOROTHIAZIDE\OLMESARTAN MEDOXOMIL [Suspect]
     Active Substance: HYDROCHLOROTHIAZIDE\OLMESARTAN MEDOXOMIL
     Indication: Hypertension
     Dosage: 40/25 MG ONCE A DAY
     Route: 065
  3. HYDROCHLOROTHIAZIDE\OLMESARTAN MEDOXOMIL [Suspect]
     Active Substance: HYDROCHLOROTHIAZIDE\OLMESARTAN MEDOXOMIL
     Dosage: 25 MILLIGRAM, ONCE A DAY
     Route: 048
  4. HYDROCHLOROTHIAZIDE\OLMESARTAN MEDOXOMIL [Suspect]
     Active Substance: HYDROCHLOROTHIAZIDE\OLMESARTAN MEDOXOMIL
     Dosage: 40 MILLIGRAM, ONCE A DAY
     Route: 048
  5. FUROSEMIDE [Concomitant]
     Active Substance: FUROSEMIDE
     Indication: Hypertension
     Dosage: 25 MILLIGRAM, ONCE A DAY
     Route: 065
  6. ROSUVASTATIN [Concomitant]
     Active Substance: ROSUVASTATIN
     Indication: Dyslipidaemia
     Dosage: 5 MILLIGRAM, ONCE A DAY
     Route: 065
  7. ROSUVASTATIN [Concomitant]
     Active Substance: ROSUVASTATIN
     Indication: Hypertension
  8. HYDROCHLOROTHIAZIDE [Concomitant]
     Active Substance: HYDROCHLOROTHIAZIDE
     Indication: Hypertension
     Dosage: 25 MILLIGRAM, ONCE A DAY
     Route: 065

REACTIONS (19)
  - Sprue-like enteropathy [Recovered/Resolved]
  - Fatigue [Recovered/Resolved]
  - Vomiting [Recovered/Resolved]
  - Abdominal distension [Recovering/Resolving]
  - Gastrointestinal wall thickening [Recovered/Resolved]
  - Colitis microscopic [Recovering/Resolving]
  - Chronic gastritis [Recovering/Resolving]
  - Gastrointestinal disorder [Recovered/Resolved]
  - Weight decreased [Recovered/Resolved]
  - Diarrhoea [Recovered/Resolved]
  - Intestinal villi atrophy [Recovered/Resolved]
  - Enterorrhaphy [Recovered/Resolved]
  - Acute kidney injury [Recovered/Resolved]
  - Lymphocytic infiltration [Recovered/Resolved]
  - Hypokalaemia [Not Recovered/Not Resolved]
  - Hyponatraemia [Recovering/Resolving]
  - Normocytic anaemia [Recovering/Resolving]
  - Hypoalbuminaemia [Recovering/Resolving]
  - Renal failure [Recovered/Resolved]
